FAERS Safety Report 25038665 (Version 3)
Quarter: 2025Q1

REPORT INFORMATION
  Report Type: Spontaneous
  Country: JP (occurrence: JP)
  Receive Date: 20250304
  Receipt Date: 20250331
  Transmission Date: 20250408
  Serious: Yes (Hospitalization, Other)
  Sender: TAKEDA
  Company Number: JP-TAKEDA-2025TJP001136

PATIENT
  Age: 7 Decade
  Sex: Male

DRUGS (2)
  1. FRUZAQLA [Suspect]
     Active Substance: FRUQUINTINIB
     Indication: Colon cancer
     Dosage: 4 MILLIGRAM, QD
     Dates: start: 20250114
  2. FRUZAQLA [Suspect]
     Active Substance: FRUQUINTINIB

REACTIONS (4)
  - Thermal burn [Recovered/Resolved]
  - Intestinal obstruction [Recovered/Resolved]
  - Palmar-plantar erythrodysaesthesia syndrome [Recovering/Resolving]
  - Proteinuria [Recovered/Resolved]
